FAERS Safety Report 4945914-9 (Version None)
Quarter: 2006Q1

REPORT INFORMATION
  Report Type: 
  Country: None (occurrence: None)
  Receive Date: 20060202
  Receipt Date: 20050525
  Transmission Date: 20060701
  Serious: Yes (Other)
  Sender: FDA-Public Use
  Company Number: 2005079747

PATIENT
  Age: 78 Year
  Sex: Female
  Weight: 47.6277 kg

DRUGS (6)
  1. AROMASIN [Suspect]
     Indication: BREAST CANCER
     Dosage: 25 MG (25 MG,EVERY DAY),ORAL
     Route: 048
     Dates: start: 20040101
  2. ACTONEL [Concomitant]
  3. THYROID TAB [Concomitant]
  4. VITAMINS (VITAMINS) [Concomitant]
  5. MINERALS (MINERALS) [Concomitant]
  6. ARIMIDEX [Concomitant]

REACTIONS (5)
  - FATIGUE [None]
  - FEMUR FRACTURE [None]
  - INSOMNIA [None]
  - LIMB INJURY [None]
  - WEIGHT DECREASED [None]
